FAERS Safety Report 23206308 (Version 1)
Quarter: 2023Q4

REPORT INFORMATION
  Report Type: Spontaneous
  Country: US (occurrence: US)
  Receive Date: 20231120
  Receipt Date: 20231120
  Transmission Date: 20240109
  Serious: No
  Sender: FDA-Public Use
  Company Number: US-Merz Pharmaceuticals GmbH-23-03404

PATIENT
  Sex: Female

DRUGS (1)
  1. XEOMIN [Suspect]
     Active Substance: INCOBOTULINUMTOXINA
     Indication: Skin cosmetic procedure
     Route: 030
     Dates: start: 2023, end: 2023

REACTIONS (3)
  - Injection site nerve damage [Unknown]
  - Facial asymmetry [Unknown]
  - Off label use [Unknown]

NARRATIVE: CASE EVENT DATE: 20230101
